FAERS Safety Report 8093933 (Version 2)
Quarter: 2013Q4

REPORT INFORMATION
  Report Type: Spontaneous
  Country: US (occurrence: US)
  Receive Date: 20110817
  Receipt Date: 20131016
  Transmission Date: 20140711
  Serious: Yes (Hospitalization)
  Sender: FDA-Public Use
  Company Number: US-PFIZER INC-2011187848

PATIENT
  Age: 53 Year
  Sex: Female
  Weight: 63 kg

DRUGS (1)
  1. DILANTIN-125 [Suspect]
     Indication: CONVULSION
     Dosage: UNKNOWN DOSE TWO TIMES A DAY
     Route: 048
     Dates: start: 1981, end: 201108

REACTIONS (7)
  - Drug level increased [Recovered/Resolved]
  - Abdominal pain upper [Recovered/Resolved]
  - Fatigue [Recovered/Resolved]
  - Hypersomnia [Recovered/Resolved]
  - Gait disturbance [Recovered/Resolved]
  - Product taste abnormal [Recovered/Resolved]
  - Abdominal discomfort [Recovered/Resolved]
